FAERS Safety Report 7350009-3 (Version None)
Quarter: 2011Q1

REPORT INFORMATION
  Report Type: 
  Country: None (occurrence: None)
  Receive Date: 20110314
  Receipt Date: 20110303
  Transmission Date: 20110831
  Serious: Yes (Hospitalization)
  Sender: FDA-Public Use
  Company Number: FR-ROCHE-764183

PATIENT
  Sex: Female

DRUGS (6)
  1. AVASTIN [Suspect]
     Dosage: HER LAST COURSE (COURSE: 5, DAY: 15) OF BEVACIZUMAB.
     Route: 042
     Dates: start: 20090327, end: 20090506
  2. POLARAMINE [Suspect]
     Indication: PREMEDICATION
     Route: 042
     Dates: start: 20090121
  3. PLITICAN [Suspect]
     Indication: PREMEDICATION
     Route: 042
     Dates: start: 20090121
  4. METHYLPREDNISOLONE [Suspect]
     Indication: PREMEDICATION
     Route: 042
     Dates: start: 20090121, end: 20090402
  5. AVASTIN [Suspect]
     Indication: BREAST CANCER
     Dosage: DOSAGE INCREASED
     Route: 042
     Dates: start: 20090205
  6. PACLITAXEL [Suspect]
     Indication: BREAST CANCER
     Dosage: PACLITAXEL EBEWE
     Route: 042
     Dates: start: 20090121, end: 20090121

REACTIONS (2)
  - DRUG ERUPTION [None]
  - LICHENOID KERATOSIS [None]
